FAERS Safety Report 7763023-0 (Version None)
Quarter: 2011Q3

REPORT INFORMATION
  Report Type: 
  Country: None (occurrence: None)
  Receive Date: 20110920
  Receipt Date: 20110912
  Transmission Date: 20111222
  Serious: Yes (Hospitalization, Disabling, Other)
  Sender: FDA-Public Use
  Company Number: JP-ASTRAZENECA-2011SE43196

PATIENT
  Age: 81 Year
  Sex: Male
  Weight: 52 kg

DRUGS (21)
  1. SERTRALINE HYDROCHLORIDE [Concomitant]
     Indication: BIPOLAR I DISORDER
     Route: 048
     Dates: end: 20110710
  2. LITHIUM CARBONATE [Suspect]
     Indication: BIPOLAR I DISORDER
     Route: 048
     Dates: start: 20110217, end: 20110307
  3. ARICEPT [Concomitant]
     Indication: BIPOLAR I DISORDER
     Route: 048
     Dates: end: 20110710
  4. OLMESARTAN MEDOXOMIL [Concomitant]
     Indication: HYPERTENSION
     Route: 048
  5. BUFFERIN [Concomitant]
     Indication: HYPERTENSION
     Route: 048
  6. CORINAEL [Concomitant]
     Indication: GOUT
     Route: 048
  7. SENNAL NICHIIKO [Concomitant]
     Indication: CONSTIPATION
     Route: 048
  8. DANTRIUM [Suspect]
     Indication: NEUROLEPTIC MALIGNANT SYNDROME
     Route: 042
     Dates: start: 20110711, end: 20110713
  9. DEPAS [Suspect]
     Indication: BIPOLAR I DISORDER
     Route: 048
     Dates: end: 20110710
  10. CALNATE [Concomitant]
     Indication: HYPERTENSION
     Route: 048
  11. CEFTRIAXONE [Concomitant]
     Indication: PYREXIA
     Route: 042
     Dates: start: 20110710, end: 20110711
  12. SEROQUEL [Suspect]
     Indication: BIPOLAR I DISORDER
     Route: 048
     Dates: end: 20110710
  13. BUFFERIN [Concomitant]
     Indication: GOUT
     Route: 048
  14. OLMESARTAN MEDOXOMIL [Concomitant]
     Indication: GOUT
     Route: 048
  15. CALNATE [Concomitant]
     Indication: GOUT
     Route: 048
  16. CORINAEL [Concomitant]
     Indication: HYPERTENSION
     Route: 048
  17. PHENOBARBITAL TAB [Concomitant]
     Indication: CONVULSION
     Route: 042
     Dates: start: 20110710, end: 20110710
  18. ZOLPIDEM [Concomitant]
     Dates: end: 20110710
  19. PHENYTOIN SODIUM CAP [Concomitant]
     Indication: CONVULSION
     Route: 042
     Dates: start: 20110711, end: 20110711
  20. ALENDRONATE SODIUM [Concomitant]
     Indication: OSTEOPOROSIS
     Route: 048
  21. DIAZEPAM [Concomitant]
     Indication: CONVULSION
     Route: 042
     Dates: start: 20110710, end: 20110711

REACTIONS (3)
  - CONVULSION [None]
  - HEPATIC FUNCTION ABNORMAL [None]
  - NEUROLEPTIC MALIGNANT SYNDROME [None]
